FAERS Safety Report 4577544-5 (Version None)
Quarter: 2005Q1

REPORT INFORMATION
  Report Type: 
  Country: None (occurrence: None)
  Receive Date: 20050127
  Receipt Date: 20040923
  Transmission Date: 20050727
  Serious: No
  Sender: FDA-Public Use
  Company Number: US_0410106253

PATIENT
  Age: 30 Year
  Sex: Female

DRUGS (3)
  1. STRATTERA [Suspect]
     Indication: ATTENTION DEFICIT/HYPERACTIVITY DISORDER
     Dosage: 40 MG/L DAY
     Dates: start: 20040922
  2. METFORMIN [Concomitant]
  3. SPIRONOLACTONE [Concomitant]

REACTIONS (1)
  - NOCTURIA [None]
